FAERS Safety Report 25193506 (Version 3)
Quarter: 2025Q4

REPORT INFORMATION
  Report Type: Report from Study
  Country: US (occurrence: US)
  Receive Date: 20250414
  Receipt Date: 20251003
  Transmission Date: 20260118
  Serious: Yes (Other)
  Sender: ALEXION PHARMACEUTICALS
  Company Number: US-AstraZeneca-CH-00846268A

PATIENT
  Sex: Female

DRUGS (1)
  1. STRENSIQ [Suspect]
     Active Substance: ASFOTASE ALFA
     Dosage: UNK
     Route: 065

REACTIONS (4)
  - Ankle fracture [Recovering/Resolving]
  - Arthritis [Unknown]
  - Emotional distress [Unknown]
  - Frustration tolerance decreased [Unknown]
